FAERS Safety Report 25575140 (Version 1)
Quarter: 2025Q3

REPORT INFORMATION
  Report Type: Spontaneous
  Country: US (occurrence: US)
  Receive Date: 20250718
  Receipt Date: 20250718
  Transmission Date: 20251020
  Serious: Yes (Hospitalization, Congenital Anomaly)
  Sender: TEVA
  Company Number: US-TEVA-VS-3351963

PATIENT
  Sex: Male

DRUGS (6)
  1. RIZATRIPTAN [Suspect]
     Active Substance: RIZATRIPTAN
     Indication: Migraine
     Route: 064
  2. NURTEC ODT [Suspect]
     Active Substance: RIMEGEPANT SULFATE
     Indication: Migraine
     Route: 064
     Dates: start: 2023
  3. MIDODRINE [Concomitant]
     Active Substance: MIDODRINE
     Indication: Autonomic nervous system imbalance
     Route: 064
     Dates: start: 202505
  4. PROVENTIL [Concomitant]
     Active Substance: ALBUTEROL
     Indication: Asthma
     Route: 064
  5. BUSPAR [Concomitant]
     Active Substance: BUSPIRONE HYDROCHLORIDE
     Indication: Anxiety
     Route: 064
  6. TYLENOL [Suspect]
     Active Substance: ACETAMINOPHEN
     Indication: Migraine
     Route: 064
     Dates: start: 2023

REACTIONS (4)
  - Protein C deficiency [Unknown]
  - Intensive care [Unknown]
  - Foetal exposure timing unspecified [Unknown]
  - Premature baby [Unknown]

NARRATIVE: CASE EVENT DATE: 20250515
